FAERS Safety Report 15559220 (Version 2)
Quarter: 2018Q4

REPORT INFORMATION
  Report Type: Spontaneous
  Country: US (occurrence: US)
  Receive Date: 20181029
  Receipt Date: 20181117
  Transmission Date: 20190205
  Serious: No
  Sender: FDA-Public Use
  Company Number: US-JNJFOC-20180925543

PATIENT
  Sex: Female
  Weight: 117.48 kg

DRUGS (2)
  1. ORTHO TRI CYCLEN [Suspect]
     Active Substance: ETHINYL ESTRADIOL\NORGESTIMATE
     Indication: PRODUCT USED FOR UNKNOWN INDICATION
     Route: 048
  2. ORTHO TRI CYCLEN [Suspect]
     Active Substance: ETHINYL ESTRADIOL\NORGESTIMATE
     Indication: PRODUCT USED FOR UNKNOWN INDICATION
     Route: 048

REACTIONS (6)
  - Night blindness [Unknown]
  - Product dose omission [Unknown]
  - Menorrhagia [Not Recovered/Not Resolved]
  - Product label issue [Unknown]
  - Inappropriate schedule of product administration [Unknown]
  - Dry eye [Unknown]

NARRATIVE: CASE EVENT DATE: 2018
